FAERS Safety Report 5905531-0 (Version None)
Quarter: 2008Q4

REPORT INFORMATION
  Report Type: 
  Country: None (occurrence: None)
  Receive Date: 20081002
  Receipt Date: 20080929
  Transmission Date: 20090506
  Serious: Yes (Death, Hospitalization)
  Sender: FDA-Public Use
  Company Number: FR-CELGENEUS-056-C5013-07090099

PATIENT
  Sex: Female
  Weight: 70 kg

DRUGS (4)
  1. REVLIMID [Suspect]
     Indication: MULTIPLE MYELOMA
     Route: 048
     Dates: start: 20070710, end: 20070717
  2. REVLIMID [Suspect]
     Route: 048
     Dates: start: 20070807, end: 20070817
  3. DEXAMETHASONE [Concomitant]
     Indication: MULTIPLE MYELOMA
     Route: 048
     Dates: start: 20070701
  4. EXACYL [Concomitant]
     Indication: DRUG USE FOR UNKNOWN INDICATION
     Route: 065

REACTIONS (6)
  - ESCHERICHIA BACTERAEMIA [None]
  - METABOLIC DISORDER [None]
  - MULTIPLE MYELOMA [None]
  - PYREXIA [None]
  - RENAL FAILURE [None]
  - STREPTOCOCCAL BACTERAEMIA [None]
